FAERS Safety Report 4388438-2 (Version None)
Quarter: 2004Q2

REPORT INFORMATION
  Report Type: 
  Country: None (occurrence: None)
  Receive Date: 20040625
  Receipt Date: 20040615
  Transmission Date: 20050107
  Serious: Yes (Death, Hospitalization)
  Sender: FDA-Public Use
  Company Number: HQWYE305907JUN04

PATIENT
  Age: 83 Year
  Sex: Male

DRUGS (5)
  1. CORDARONE [Suspect]
     Dosage: 400 MG 5X PER 1 WK
  2. CAPTOPRIL [Concomitant]
  3. FUROSEMIDE [Concomitant]
  4. ACETYLSALICYLIC ACID SRT [Concomitant]
  5. ACENOCOUMAROL (ACENOCOUMAROL) [Concomitant]

REACTIONS (16)
  - ASCITES [None]
  - BLOOD THYROID STIMULATING HORMONE INCREASED [None]
  - C-REACTIVE PROTEIN INCREASED [None]
  - COAGULOPATHY [None]
  - FIBROSIS [None]
  - HAEMATEMESIS [None]
  - HEPATITIS [None]
  - HEPATOJUGULAR REFLUX [None]
  - HEPATOMEGALY [None]
  - IMMUNOGLOBULINS INCREASED [None]
  - JUGULAR VEIN DISTENSION [None]
  - OEDEMA PERIPHERAL [None]
  - PORTAL HYPERTENSION [None]
  - PROTEIN TOTAL INCREASED [None]
  - PULMONARY FIBROSIS [None]
  - RENAL FAILURE [None]
